FAERS Safety Report 7941031-4 (Version None)
Quarter: 2011Q4

REPORT INFORMATION
  Report Type: 
  Country: None (occurrence: None)
  Receive Date: 20111122
  Receipt Date: 20111111
  Transmission Date: 20120403
  Serious: Yes (Other)
  Sender: FDA-Public Use
  Company Number: 2011P1010249

PATIENT
  Age: 61 Year
  Sex: Female
  Weight: 58.0604 kg

DRUGS (8)
  1. FENTANYL [Suspect]
     Indication: PAIN
     Dosage: 1 PATCH, Q3D, TDER
     Route: 062
     Dates: start: 20110901
  2. ACETAMINOPHEN [Concomitant]
  3. FENTANYL CITRATE [Suspect]
     Indication: PAIN
     Dosage: 1 PATCH; Q3D, TDER
     Route: 062
     Dates: start: 20110901
  4. AMPYRA [Concomitant]
  5. GABAPENTIN [Concomitant]
  6. CALCIUM + VITAMIN D3 [Concomitant]
  7. FISH OIL + VITAMIN D3 [Concomitant]
  8. AMOXICILLIN [Concomitant]

REACTIONS (4)
  - VISION BLURRED [None]
  - METASTASES TO SALIVARY GLAND [None]
  - METASTASES TO EYE [None]
  - LUNG CANCER METASTATIC [None]
